FAERS Safety Report 5108683-8 (Version None)
Quarter: 2006Q3

REPORT INFORMATION
  Report Type: 
  Country: None (occurrence: None)
  Receive Date: 20060915
  Receipt Date: 20060907
  Transmission Date: 20061208
  Serious: Yes (Hospitalization)
  Sender: FDA-Public Use
  Company Number: 2006-DE-04804GD

PATIENT
  Age: 50 Year
  Sex: Male

DRUGS (1)
  1. PREDNISONE TAB [Suspect]
     Indication: RHEUMATOID ARTHRITIS

REACTIONS (4)
  - AEROMONA INFECTION [None]
  - CELLULITIS [None]
  - ENTEROBACTER INFECTION [None]
  - OSTEITIS [None]
